FAERS Safety Report 7598254-6 (Version None)
Quarter: 2011Q3

REPORT INFORMATION
  Report Type: 
  Country: None (occurrence: None)
  Receive Date: 20110708
  Receipt Date: 20110629
  Transmission Date: 20111222
  Serious: Yes (Hospitalization)
  Sender: FDA-Public Use
  Company Number: US-ROCHE-787849

PATIENT
  Sex: Female

DRUGS (1)
  1. BONIVA [Suspect]
     Dosage: ROUTE AND FREQUENCY WAS NOT REPORTED. THIS WAS SECOND DOSE
     Route: 065

REACTIONS (10)
  - BACK PAIN [None]
  - INSOMNIA [None]
  - INFLUENZA [None]
  - PAIN IN EXTREMITY [None]
  - PAIN [None]
  - NAUSEA [None]
  - HEADACHE [None]
  - MYALGIA [None]
  - DIZZINESS [None]
  - MUSCLE SPASMS [None]
